FAERS Safety Report 9960648 (Version 2)
Quarter: 2014Q1

REPORT INFORMATION
  Report Type: Report from Study
  Country: TH (occurrence: TH)
  Receive Date: 20140305
  Receipt Date: 20140305
  Transmission Date: 20141002
  Serious: Yes (Death, Other)
  Sender: FDA-Public Use
  Company Number: TH-JNJFOC-20091002899

PATIENT
  Age: 43 Year
  Sex: Male
  Weight: 50 kg

DRUGS (1)
  1. DORIPENEM [Suspect]
     Indication: PNEUMONIA
     Route: 041
     Dates: start: 20090922, end: 20090925

REACTIONS (2)
  - Bronchopulmonary aspergillosis [Fatal]
  - Jaundice cholestatic [Not Recovered/Not Resolved]
